FAERS Safety Report 8079233-1 (Version None)
Quarter: 2012Q1

REPORT INFORMATION
  Report Type: 
  Country: None (occurrence: None)
  Receive Date: 20120128
  Receipt Date: 20110817
  Transmission Date: 20120608
  Serious: No
  Sender: FDA-Public Use
  Company Number: US-ABBOTT-11P-163-0847377-00

PATIENT
  Sex: Female
  Weight: 59.02 kg

DRUGS (3)
  1. HUMIRA [Suspect]
     Dates: start: 20110713, end: 20110713
  2. HUMIRA [Suspect]
     Dates: start: 20110727
  3. HUMIRA [Suspect]
     Indication: CROHN'S DISEASE
     Dates: start: 20110622, end: 20110622

REACTIONS (2)
  - RASH PRURITIC [None]
  - HERPES ZOSTER [None]
